FAERS Safety Report 17382083 (Version 1)
Quarter: 2020Q1

REPORT INFORMATION
  Report Type: Spontaneous
  Country: US (occurrence: US)
  Receive Date: 20200206
  Receipt Date: 20200206
  Transmission Date: 20200409
  Serious: Yes (Hospitalization)
  Sender: FDA-Public Use
  Company Number: US-ABBVIE-19K-163-2764723-00

PATIENT
  Age: 27 Year
  Sex: Male
  Weight: 68.1 kg

DRUGS (2)
  1. HUMIRA [Suspect]
     Active Substance: ADALIMUMAB
     Indication: CROHN^S DISEASE
     Route: 058
     Dates: start: 2013, end: 20190424
  2. HUMIRA [Suspect]
     Active Substance: ADALIMUMAB
     Route: 058
     Dates: start: 20190609

REACTIONS (4)
  - Road traffic accident [Recovered/Resolved]
  - Facial bones fracture [Recovered/Resolved]
  - Postoperative wound infection [Recovered/Resolved]
  - Clavicle fracture [Recovering/Resolving]

NARRATIVE: CASE EVENT DATE: 20190424
